FAERS Safety Report 23697376 (Version 2)
Quarter: 2024Q2

REPORT INFORMATION
  Report Type: Spontaneous
  Country: AR (occurrence: AR)
  Receive Date: 20240402
  Receipt Date: 20240628
  Transmission Date: 20240716
  Serious: Yes (Death, Other)
  Sender: FDA-Public Use
  Company Number: AR-TEVA-VS-3176778

PATIENT
  Age: 66 Year
  Sex: Male

DRUGS (10)
  1. LENALIDOMIDE [Suspect]
     Active Substance: LENALIDOMIDE
     Indication: Plasma cell myeloma
     Route: 065
     Dates: start: 2019, end: 2020
  2. ETOPOSIDE [Suspect]
     Active Substance: ETOPOSIDE
     Indication: Plasma cell leukaemia
     Dosage: ON DAYS?1 4
     Route: 065
     Dates: start: 202009
  3. CYCLOPHOSPHAMIDE [Suspect]
     Active Substance: CYCLOPHOSPHAMIDE
     Indication: Plasma cell leukaemia
     Dosage: ON DAYS?1 4
     Route: 065
     Dates: start: 202009
  4. THALIDOMIDE [Suspect]
     Active Substance: THALIDOMIDE
     Indication: Plasma cell leukaemia
     Dosage: ON DAYS?1,4,8,11 PART OF VDT-PACE REGIMEN
     Route: 065
     Dates: start: 202009
  5. DEXAMETHASONE [Suspect]
     Active Substance: DEXAMETHASONE
     Indication: Plasma cell myeloma
     Route: 065
     Dates: start: 2019, end: 2020
  6. DEXAMETHASONE [Suspect]
     Active Substance: DEXAMETHASONE
     Indication: Plasma cell myeloma
     Dosage: VDT-PACE REGIMEN ON DAYS 1-4
     Route: 065
     Dates: start: 202009
  7. DOXORUBICIN [Suspect]
     Active Substance: DOXORUBICIN
     Indication: Plasma cell leukaemia
     Dosage: ON DAYS?1 4
     Route: 065
     Dates: start: 202009
  8. CISPLATIN [Suspect]
     Active Substance: CISPLATIN
     Indication: Plasma cell leukaemia
     Dosage: ON DAYS?1 4
     Route: 065
     Dates: start: 202009
  9. BORTEZOMIB [Suspect]
     Active Substance: BORTEZOMIB
     Indication: Plasma cell leukaemia
     Dosage: ON DAYS 1,4,8,11
     Route: 065
     Dates: start: 202009
  10. CARFILZOMIB [Suspect]
     Active Substance: CARFILZOMIB
     Indication: Plasma cell myeloma
     Dosage: 27 MG/M*2 TWICE WEEKLY FOR 6 CYCLE
     Route: 065
     Dates: start: 2019, end: 2020

REACTIONS (2)
  - Drug ineffective [Fatal]
  - Cardiotoxicity [Unknown]
